FAERS Safety Report 12645091 (Version 8)
Quarter: 2017Q4

REPORT INFORMATION
  Report Type: Spontaneous
  Country: US (occurrence: US)
  Receive Date: 20160811
  Receipt Date: 20171108
  Transmission Date: 20180320
  Serious: Yes (Congenital Anomaly, Other)
  Sender: FDA-Public Use
  Company Number: PHEH2016US019899

PATIENT
  Sex: Female

DRUGS (2)
  1. ONDANSETRON HYDROCHLORIDE. [Suspect]
     Active Substance: ONDANSETRON HYDROCHLORIDE
     Indication: FOETAL EXPOSURE DURING PREGNANCY
     Dosage: MOTHER DOSE: 04 MG, UNK
     Route: 064
  2. ZOFRAN [Suspect]
     Active Substance: ONDANSETRON HYDROCHLORIDE
     Indication: FOETAL EXPOSURE DURING PREGNANCY
     Dosage: MOTHER^S DOSE: 04 MG, UNK
     Route: 064

REACTIONS (26)
  - Congenital anomaly [Unknown]
  - Atrial septal defect [Unknown]
  - Ventricular extrasystoles [Unknown]
  - Heart disease congenital [Unknown]
  - Foetal exposure during pregnancy [Unknown]
  - Cardiac murmur [Unknown]
  - Syringomyelia [Unknown]
  - Otitis media acute [Unknown]
  - Pulmonary artery stenosis congenital [Unknown]
  - Pulmonary valve incompetence [Unknown]
  - Hydromyelia [Unknown]
  - Pneumonia [Unknown]
  - Right ventricular hypertrophy [Unknown]
  - Upper respiratory tract infection [Unknown]
  - Fallot^s tetralogy [Unknown]
  - Congenital pulmonary valve disorder [Unknown]
  - Right ventricle outflow tract obstruction [Unknown]
  - Right aortic arch [Unknown]
  - Atelectasis [Unknown]
  - Pericardial effusion [Unknown]
  - Right ventricular dilatation [Unknown]
  - Dysuria [Unknown]
  - Cardiomegaly [Unknown]
  - Ventricular septal defect [Unknown]
  - Congenital umbilical hernia [Unknown]
  - Constipation [Unknown]
